FAERS Safety Report 4741455-2 (Version None)
Quarter: 2005Q3

REPORT INFORMATION
  Report Type: 
  Country: None (occurrence: None)
  Receive Date: 20050808
  Receipt Date: 20050727
  Transmission Date: 20060218
  Serious: Yes (Disabling, Other)
  Sender: FDA-Public Use
  Company Number: 2005107488

PATIENT
  Sex: Female

DRUGS (1)
  1. ZYRTEC-D 12 HOUR [Suspect]
     Indication: ILL-DEFINED DISORDER

REACTIONS (1)
  - NASAL SEPTUM DEVIATION [None]
